FAERS Safety Report 6683343-0 (Version None)
Quarter: 2010Q2

REPORT INFORMATION
  Report Type: 
  Country: None (occurrence: None)
  Receive Date: 20100415
  Receipt Date: 20100412
  Transmission Date: 20101027
  Serious: Yes (Death, Life-Threatening, Hospitalization)
  Sender: FDA-Public Use
  Company Number: PHBS2003JP13402

PATIENT
  Sex: Male
  Weight: 53 kg

DRUGS (6)
  1. GLEEVEC [Suspect]
     Indication: GASTROINTESTINAL STROMAL TUMOUR
     Dosage: 400 MG, QD
     Route: 048
     Dates: start: 20030627, end: 20031029
  2. GLEEVEC [Suspect]
     Dosage: 400 MG, QD
     Route: 048
     Dates: start: 20031225
  3. GLEEVEC [Suspect]
     Dosage: 200 MG, QD
     Route: 048
  4. VOLTAREN [Concomitant]
     Dosage: 75 MG/D
     Route: 048
     Dates: start: 20030627, end: 20031029
  5. FAMOTIDINE [Concomitant]
     Indication: GASTRIC ULCER
     Dosage: 40 MG/D
     Route: 048
     Dates: start: 20030627, end: 20031029
  6. PRIMPERAN [Concomitant]
     Dosage: 5 MG/D
     Route: 048
     Dates: start: 20030704, end: 20031029

REACTIONS (26)
  - ABSCESS DRAINAGE [None]
  - ARTHRALGIA [None]
  - C-REACTIVE PROTEIN INCREASED [None]
  - CARDIO-RESPIRATORY ARREST [None]
  - CREPITATIONS [None]
  - DEPRESSED LEVEL OF CONSCIOUSNESS [None]
  - ERYTHEMA [None]
  - FACE OEDEMA [None]
  - GANGRENE [None]
  - GAS GANGRENE [None]
  - HYPOTENSION [None]
  - INCISIONAL DRAINAGE [None]
  - MYALGIA [None]
  - NAUSEA [None]
  - NECROSIS [None]
  - NECROTISING FASCIITIS [None]
  - PERIRECTAL ABSCESS [None]
  - PROCTALGIA [None]
  - PYREXIA [None]
  - RECTAL PERFORATION [None]
  - SCROTAL SWELLING [None]
  - SEPSIS [None]
  - SEPTIC SHOCK [None]
  - SUBCUTANEOUS EMPHYSEMA [None]
  - TENDERNESS [None]
  - VOMITING [None]
